FAERS Safety Report 23689697 (Version 1)
Quarter: 2024Q1

REPORT INFORMATION
  Report Type: Spontaneous
  Country: IE (occurrence: IE)
  Receive Date: 20240331
  Receipt Date: 20240331
  Transmission Date: 20240409
  Serious: Yes (Other)
  Sender: FDA-Public Use
  Company Number: IE-CELLTRION INC.-2024IE006068

PATIENT

DRUGS (3)
  1. YUFLYMA [Suspect]
     Active Substance: ADALIMUMAB-AATY
     Indication: Rheumatoid arthritis
     Dosage: 80MGS FORTNIGHTLY OF YUFLYMA
     Route: 058
     Dates: start: 20240307
  2. METHOTREXATE [Concomitant]
     Active Substance: METHOTREXATE
  3. DELTACORTRIL [Concomitant]
     Active Substance: PREDNISOLONE

REACTIONS (2)
  - Rheumatoid arthritis [Unknown]
  - Loss of personal independence in daily activities [Unknown]

NARRATIVE: CASE EVENT DATE: 20240307
